FAERS Safety Report 9931634 (Version 1)
Quarter: 2014Q1

REPORT INFORMATION
  Report Type: Spontaneous
  Country: US (occurrence: US)
  Receive Date: 20140228
  Receipt Date: 20140228
  Transmission Date: 20141002
  Serious: Yes (Other)
  Sender: FDA-Public Use
  Company Number: US-RB-063325-14

PATIENT
  Age: 34 Year
  Sex: Female

DRUGS (1)
  1. DELSYM CHILDREN^S GRAPE [Suspect]
     Indication: EUPHORIC MOOD
     Dosage: 5 OUNCE
     Route: 048
     Dates: start: 20140220

REACTIONS (3)
  - Drug abuse [Unknown]
  - Intentional overdose [Unknown]
  - Drug dependence [Unknown]
